FAERS Safety Report 10217782 (Version 2)
Quarter: 2014Q2

REPORT INFORMATION
  Report Type: Other
  Country: CA (occurrence: CA)
  Receive Date: 20140604
  Receipt Date: 20140604
  Transmission Date: 20141212
  Serious: Yes (Other)
  Sender: FDA-Public Use
  Company Number: CA-GSKPPD-2014GSK007673

PATIENT
  Sex: Female

DRUGS (2)
  1. AVANDIA [Suspect]
     Indication: DIABETES MELLITUS
     Dosage: DATES OF AVANDIA USE COULD NOT BE CONFIRMED IN RECORDS REVIEWED.
     Route: 048
  2. FUROSEMIDE [Concomitant]
     Dates: start: 200905

REACTIONS (8)
  - Cardiac failure congestive [Recovered/Resolved]
  - Atrial fibrillation [None]
  - Electrocardiogram abnormal [None]
  - Electrocardiogram T wave abnormal [None]
  - Myocardial infarction [None]
  - Aortic stenosis [None]
  - Coronary artery disease [None]
  - Cardiac failure congestive [None]
